FAERS Safety Report 6244043-4 (Version None)
Quarter: 2009Q2

REPORT INFORMATION
  Report Type: 
  Country: None (occurrence: None)
  Receive Date: 20090625
  Receipt Date: 20070430
  Transmission Date: 20091009
  Serious: Yes (Other)
  Sender: FDA-Public Use
  Company Number: US-ASTRAZENECA-2006UW07954

PATIENT
  Age: 575 Month
  Sex: Female
  Weight: 129.7 kg

DRUGS (22)
  1. SEROQUEL [Suspect]
     Indication: BIPOLAR DISORDER
     Route: 048
     Dates: start: 20021001
  2. SEROQUEL [Suspect]
     Indication: DEPRESSION
     Route: 048
     Dates: start: 20021001
  3. SEROQUEL [Suspect]
     Dosage: 80 - 400 MG DAILY
     Route: 048
     Dates: start: 20040421
  4. SEROQUEL [Suspect]
     Dosage: 80 - 400 MG DAILY
     Route: 048
     Dates: start: 20040421
  5. RISPERDAL [Concomitant]
     Indication: BIPOLAR I DISORDER
     Route: 048
     Dates: start: 20021122
  6. MELLARIL [Concomitant]
  7. NEURONTIN [Concomitant]
  8. TEGRETOL [Concomitant]
  9. ADVAIR DISKUS 100/50 [Concomitant]
     Dates: start: 20061011
  10. NORVASC [Concomitant]
     Indication: HYPERTENSION
     Dosage: 5 - 10 MG DAILY
     Dates: start: 20050214
  11. DEPAKOTE [Concomitant]
     Indication: BIPOLAR I DISORDER
     Dosage: 10 - 2000 MG DAILY
     Dates: start: 20021122
  12. DEPAKOTE [Concomitant]
     Indication: AFFECTIVE DISORDER
     Dosage: 10 - 2000 MG DAILY
     Dates: start: 20021122
  13. LOVASTATIN [Concomitant]
     Indication: HYPERLIPIDAEMIA
     Dosage: 10 - 20 MG AT NIGHT
     Dates: start: 20050214
  14. ASPIRIN [Concomitant]
     Dates: start: 20051017
  15. PAXIL [Concomitant]
     Indication: DEPRESSION
     Route: 048
     Dates: start: 20021122
  16. AMBIEN [Concomitant]
     Indication: INSOMNIA
     Dates: start: 20040421
  17. AMBIEN [Concomitant]
     Indication: SLEEP DISORDER
     Dates: start: 20040421
  18. LEVOXYL [Concomitant]
     Indication: HYPOTHYROIDISM
     Dosage: 0.025 - 0.5 MG DAILY
     Dates: start: 20040421
  19. IBUPROFEN [Concomitant]
     Indication: HEADACHE
     Dates: start: 20050613
  20. IBUPROFEN [Concomitant]
     Indication: PAIN IN JAW
     Dates: start: 20050613
  21. LISINOPRIL [Concomitant]
     Dates: start: 20050118, end: 20050122
  22. SUDAFED 12 HOUR [Concomitant]
     Indication: NASAL CONGESTION
     Dosage: 4 - 6  HOURS DAILY AS REQUIRED
     Route: 048
     Dates: start: 20050915

REACTIONS (6)
  - DIABETES MELLITUS [None]
  - DIABETIC NEUROPATHY [None]
  - DIABETIC VASCULAR DISORDER [None]
  - IMPAIRED FASTING GLUCOSE [None]
  - NEUROPATHY PERIPHERAL [None]
  - TYPE 2 DIABETES MELLITUS [None]
